FAERS Safety Report 11413877 (Version 1)
Quarter: 2015Q3

REPORT INFORMATION
  Report Type: Other
  Country: AR (occurrence: AR)
  Receive Date: 20150824
  Receipt Date: 20150824
  Transmission Date: 20151125
  Serious: Yes (Death, Hospitalization, Other)
  Sender: FDA-Public Use
  Company Number: AR-SHIRE-AR201510602

PATIENT
  Age: 2 Year
  Sex: Male

DRUGS (1)
  1. ELAPRASE [Suspect]
     Active Substance: IDURSULFASE
     Indication: PRODUCT USED FOR UNKNOWN INDICATION
     Dosage: UNK UNK, OTHER (1 OR 2 VIALS IN ALTERNATE WEEKS)
     Route: 041

REACTIONS (6)
  - Death [Fatal]
  - Diarrhoea [Unknown]
  - Infusion related reaction [Unknown]
  - Pyrexia [Unknown]
  - Ventriculo-peritoneal shunt [Unknown]
  - Vomiting [Unknown]

NARRATIVE: CASE EVENT DATE: 20150724
